FAERS Safety Report 13074615 (Version 3)
Quarter: 2017Q1

REPORT INFORMATION
  Report Type: Spontaneous
  Country: IT (occurrence: IT)
  Receive Date: 20161230
  Receipt Date: 20170113
  Transmission Date: 20170428
  Serious: Yes (Other)
  Sender: FDA-Public Use
  Company Number: IT-ROCHE-1873551

PATIENT
  Age: 56 Year
  Sex: Female
  Weight: 68 kg

DRUGS (11)
  1. BEVACIZUMAB [Suspect]
     Active Substance: BEVACIZUMAB
     Dosage: 5TH CYCLE DOSE?FREQUENCY: CYCLICAL
     Route: 042
     Dates: end: 20161013
  2. FLUOROURACIL. [Suspect]
     Active Substance: FLUOROURACIL
     Dosage: 5TH CYCLE DOSE?FREQUENCY: CYCLICAL
     Route: 042
     Dates: end: 20161013
  3. IRINOTECAN HYDROCHLORIDE TRIHYDRATE [Suspect]
     Active Substance: IRINOTECAN HYDROCHLORIDE
     Indication: ADENOCARCINOMA OF COLON
     Dosage: 1ST CYCLE DOSE?FREQUENCY: CYCLICAL
     Route: 042
     Dates: start: 20160805
  4. LEVOFOLINIC ACID [Concomitant]
     Active Substance: LEVOLEUCOVORIN
     Dosage: 1ST AND 2ND CYCLE DOSE
     Route: 042
     Dates: start: 20160805
  5. IRINOTECAN HYDROCHLORIDE TRIHYDRATE [Suspect]
     Active Substance: IRINOTECAN HYDROCHLORIDE
     Dosage: 2ND AND 5TH CYCLE DOSE?FREQUENCY: CYCLICAL
     Route: 042
     Dates: end: 20161013
  6. FLUOROURACIL. [Suspect]
     Active Substance: FLUOROURACIL
     Dosage: 5TH CYCLE DOSE?FREQUENCY: CYCLICAL
     Route: 040
     Dates: end: 20161013
  7. FLUOROURACIL. [Suspect]
     Active Substance: FLUOROURACIL
     Dosage: 1ST CYCLE DOSE?FREQUENCY: CYCLICAL
     Route: 042
     Dates: start: 20160805
  8. EUTIROX [Concomitant]
     Active Substance: LEVOTHYROXINE SODIUM
     Route: 065
  9. BEVACIZUMAB [Suspect]
     Active Substance: BEVACIZUMAB
     Indication: ADENOCARCINOMA OF COLON
     Dosage: 1ST AND 2ND CYCLE DOSE?FREQUENCY: CYCLICAL
     Route: 042
     Dates: start: 20160805, end: 20161013
  10. FLUOROURACIL. [Suspect]
     Active Substance: FLUOROURACIL
     Indication: ADENOCARCINOMA OF COLON
     Dosage: 1ST CYCLE DOSE?FREQUENCY: CYCLICAL
     Route: 040
     Dates: start: 20160805
  11. LEVOFOLINIC ACID [Concomitant]
     Active Substance: LEVOLEUCOVORIN
     Dosage: 5TH CYCLE DOSE
     Route: 042
     Dates: end: 20161013

REACTIONS (5)
  - Constipation [Recovering/Resolving]
  - Influenza [Not Recovered/Not Resolved]
  - Anaemia [Recovering/Resolving]
  - Diarrhoea [Recovering/Resolving]
  - Pyrexia [Recovering/Resolving]

NARRATIVE: CASE EVENT DATE: 20160807
